FAERS Safety Report 10271645 (Version 2)
Quarter: 2014Q3

REPORT INFORMATION
  Report Type: Spontaneous
  Country: US (occurrence: US)
  Receive Date: 20140701
  Receipt Date: 20140701
  Transmission Date: 20150326
  Serious: No
  Sender: FDA-Public Use
  Company Number: -SAAVPROD-CERZ-1002644

PATIENT
  Age: 30 Year
  Sex: Female
  Weight: 55.6 kg

DRUGS (2)
  1. ZINC OXIDE. [Concomitant]
     Active Substance: ZINC OXIDE
     Indication: PREMEDICATION
     Dosage: UNK MG, UNK
     Route: 065
  2. IMIGLUCERASE [Suspect]
     Active Substance: IMIGLUCERASE
     Indication: GAUCHER^S DISEASE
     Dosage: 64.7 U/KG, Q2W DOSE:64.7 UNIT(S)/KILOGRAM BODYWEIGHT
     Route: 042
     Dates: start: 201205

REACTIONS (1)
  - Chest discomfort [Recovered/Resolved]

NARRATIVE: CASE EVENT DATE: 20120831
